FAERS Safety Report 4404633-8 (Version None)
Quarter: 2004Q3

REPORT INFORMATION
  Report Type: 
  Country: None (occurrence: None)
  Receive Date: 20040721
  Receipt Date: 20040721
  Transmission Date: 20050211
  Serious: No
  Sender: FDA-Public Use
  Company Number: None

PATIENT
  Age: 56 Year
  Sex: Male

DRUGS (13)
  1. DIGOXIN [Suspect]
     Indication: CARDIAC FAILURE CONGESTIVE
     Dosage: 0.125 QD
  2. ASPIRIN [Concomitant]
  3. LORATADINE [Concomitant]
  4. KCL TAB [Concomitant]
  5. TRAZODONE HCL [Concomitant]
  6. AMIODARONE HCL [Concomitant]
  7. LISINOPRIL [Concomitant]
  8. OMEPRAZOLE [Concomitant]
  9. METOLAZONE [Concomitant]
  10. SIMVASTATIN [Concomitant]
  11. LASIX [Concomitant]
  12. SPIRONOLACTONE [Concomitant]
  13. CITALOPRAM [Concomitant]

REACTIONS (6)
  - BRADYCARDIA [None]
  - DEHYDRATION [None]
  - DYSPNOEA [None]
  - RENAL FAILURE ACUTE [None]
  - SYNCOPE [None]
  - THERAPEUTIC AGENT TOXICITY [None]
